FAERS Safety Report 10069338 (Version 2)
Quarter: 2014Q2

REPORT INFORMATION
  Report Type: Report from Study
  Country: CA (occurrence: CA)
  Receive Date: 20140409
  Receipt Date: 20140424
  Transmission Date: 20141212
  Serious: Yes (Hospitalization, Other)
  Sender: FDA-Public Use
  Company Number: CA-ABBVIE-14K-028-1221689-00

PATIENT
  Age: 36 Year
  Sex: Female
  Weight: 64 kg

DRUGS (2)
  1. KALETRA 200/50 [Suspect]
     Indication: ANTIRETROVIRAL THERAPY
     Dosage: 200MG/50MG, LATEST DOSE: 02-APR-2014
     Route: 048
     Dates: start: 20131128
  2. COMBIVIR [Concomitant]
     Indication: HIV INFECTION
     Dosage: 150/300MG (TOTAL DAILY DOSE 300/600MG)
     Route: 048

REACTIONS (2)
  - Urinary tract infection [Recovered/Resolved]
  - Anaemia [Unknown]
